FAERS Safety Report 7810875-1 (Version None)
Quarter: 2011Q4

REPORT INFORMATION
  Report Type: 
  Country: None (occurrence: None)
  Receive Date: 20111012
  Receipt Date: 20111012
  Transmission Date: 20120403
  Serious: Yes (Life-Threatening, Other)
  Sender: FDA-Public Use
  Company Number: None

PATIENT
  Age: 88 Year
  Sex: Male
  Weight: 77.1115 kg

DRUGS (13)
  1. LISINOPRIL [Concomitant]
  2. SIMVASTATIN [Concomitant]
  3. AZOPT [Concomitant]
  4. PENTOXIFYLLINE [Concomitant]
  5. ALCORTIN GEL [Concomitant]
  6. AMLODIPINE [Concomitant]
  7. ACTOS [Suspect]
     Indication: DIABETES MELLITUS
     Dosage: 15MG DAILY
  8. DOXAZOSIN MESYLATE [Concomitant]
  9. LIMBREL [Concomitant]
  10. FLUTICASONE SPRAY, [Concomitant]
  11. AZOPT [Concomitant]
  12. XALATAN [Concomitant]
  13. GABAPENTIN [Concomitant]

REACTIONS (2)
  - BLADDER NEOPLASM [None]
  - HAEMORRHAGE [None]
